FAERS Safety Report 19920840 (Version 1)
Quarter: 2021Q4

REPORT INFORMATION
  Report Type: Other
  Country: TR (occurrence: TR)
  Receive Date: 20211006
  Receipt Date: 20211006
  Transmission Date: 20220303
  Serious: Yes (Hospitalization)
  Sender: FDA-Public Use
  Company Number: TR-CHANGZHOU PHARMACEUTICAL FACTORY-2120228

PATIENT
  Age: 73 Year
  Sex: Male
  Weight: 78 kg

DRUGS (12)
  1. ROSUVASTATIN CALCIUM [Suspect]
     Active Substance: ROSUVASTATIN CALCIUM
     Indication: Product used for unknown indication
     Route: 065
  2. APIXABAN [Concomitant]
     Active Substance: APIXABAN
     Route: 065
  3. IVABRADINE [Concomitant]
     Active Substance: IVABRADINE
     Route: 065
  4. METFORMIN [Concomitant]
     Active Substance: METFORMIN HYDROCHLORIDE
     Route: 065
  5. GINKGO [Concomitant]
     Active Substance: GINKGO
     Route: 065
  6. TRIMETAZIDINE [Concomitant]
     Active Substance: TRIMETAZIDINE
     Route: 065
  7. VANCOMYCIN [Concomitant]
     Active Substance: VANCOMYCIN
     Route: 065
  8. GENTAMICIN [Concomitant]
     Active Substance: GENTAMICIN
     Route: 065
  9. LINEZOLID [Concomitant]
     Active Substance: LINEZOLID
     Route: 065
  10. CEFTRIAXONE [Concomitant]
     Active Substance: CEFTRIAXONE
     Route: 065
  11. AMPICILLIN AND SULBACTAM [Concomitant]
     Active Substance: AMPICILLIN SODIUM\SULBACTAM SODIUM
     Route: 065
  12. DAPTOMYCIN [Interacting]
     Active Substance: DAPTOMYCIN
     Route: 065

REACTIONS (2)
  - Myositis [Recovering/Resolving]
  - Drug interaction [Recovering/Resolving]
